FAERS Safety Report 7908885-9 (Version None)
Quarter: 2011Q4

REPORT INFORMATION
  Report Type: 
  Country: None (occurrence: None)
  Receive Date: 20111111
  Receipt Date: 20111101
  Transmission Date: 20120403
  Serious: Yes (Hospitalization)
  Sender: FDA-Public Use
  Company Number: IL-BRISTOL-MYERS SQUIBB COMPANY-16153140

PATIENT
  Age: 58 Year
  Sex: Female

DRUGS (7)
  1. SIMVASTATIN [Concomitant]
     Dates: start: 20100101
  2. FULVESTRANT [Concomitant]
     Dates: end: 20110714
  3. PACLITAXEL [Suspect]
     Indication: BREAST CANCER METASTATIC
     Dosage: INTERRUPTED.RESTARTED ON 23OCT2011
     Route: 042
     Dates: start: 20110816
  4. TRASTUZUMAB [Suspect]
     Indication: BREAST CANCER METASTATIC
     Dosage: INTERRUPTED.RESTARTED ON 30OCT2011
     Route: 042
     Dates: start: 20110816
  5. PAMIDRONATE DISODIUM [Concomitant]
     Dates: start: 20100701
  6. PERCOCET [Concomitant]
     Dates: start: 20110728
  7. DEXAMETHASONE [Concomitant]
     Dates: start: 20110728

REACTIONS (3)
  - DYSPNOEA [None]
  - PNEUMONITIS [None]
  - FATIGUE [None]
